FAERS Safety Report 5354227-5 (Version None)
Quarter: 2007Q2

REPORT INFORMATION
  Report Type: 
  Country: None (occurrence: None)
  Receive Date: 20070612
  Receipt Date: 20070604
  Transmission Date: 20071010
  Serious: Yes (Other)
  Sender: FDA-Public Use
  Company Number: US-ELI_LILLY_AND_COMPANY-US200706000759

PATIENT
  Age: 62 Year
  Sex: Male

DRUGS (1)
  1. HUMATROPE [Suspect]

REACTIONS (4)
  - BLOOD GROWTH HORMONE DECREASED [None]
  - FATIGUE [None]
  - MALAISE [None]
  - PITUITARY CYST [None]
